FAERS Safety Report 16690551 (Version 1)
Quarter: 2019Q3

REPORT INFORMATION
  Report Type: Report from Study
  Country: CN (occurrence: CN)
  Receive Date: 20190810
  Receipt Date: 20190810
  Transmission Date: 20191004
  Serious: Yes (Death, Life-Threatening)
  Sender: FDA-Public Use
  Company Number: CN-ROCHE-2375649

PATIENT
  Age: 74 Year
  Sex: Female
  Weight: 79 kg

DRUGS (1)
  1. AVASTIN [Suspect]
     Active Substance: BEVACIZUMAB
     Indication: NON-SMALL CELL LUNG CANCER
     Route: 041
     Dates: start: 20160817

REACTIONS (2)
  - Hyperpyrexia [Fatal]
  - Lung infection [Not Recovered/Not Resolved]
